FAERS Safety Report 24724110 (Version 3)
Quarter: 2025Q1

REPORT INFORMATION
  Report Type: Spontaneous
  Country: US (occurrence: US)
  Receive Date: 20241211
  Receipt Date: 20250207
  Transmission Date: 20250408
  Serious: No
  Sender: SANOFI AVENTIS
  Company Number: US-SANOFI-02327980

PATIENT
  Age: 71 Year
  Sex: Female

DRUGS (2)
  1. LANTUS SOLOSTAR [Suspect]
     Active Substance: INSULIN GLARGINE
     Indication: Diabetes mellitus
     Dosage: 32 TO 34 UNITS QD
     Route: 065
  2. LYUMJEV [Concomitant]
     Active Substance: INSULIN LISPRO-AABC

REACTIONS (2)
  - Visual impairment [Unknown]
  - Product storage error [Unknown]
